FAERS Safety Report 17748180 (Version 8)
Quarter: 2023Q4

REPORT INFORMATION
  Report Type: Spontaneous
  Country: CA (occurrence: CA)
  Receive Date: 20200505
  Receipt Date: 20231201
  Transmission Date: 20240110
  Serious: Yes (Hospitalization, Other)
  Sender: FDA-Public Use
  Company Number: CA-BAUSCH-BL-2020-012935

PATIENT
  Age: 60 Year
  Sex: Female

DRUGS (33)
  1. BUDESONIDE [Suspect]
     Active Substance: BUDESONIDE
     Indication: Product used for unknown indication
     Route: 065
  2. ALBUTEROL [Suspect]
     Active Substance: ALBUTEROL
     Indication: Product used for unknown indication
     Dosage: NOT SPECIFIED
     Route: 065
  3. ALBUTEROL [Suspect]
     Active Substance: ALBUTEROL
     Dosage: SALBUTAMOL SULFATE
     Route: 065
  4. NUCALA [Suspect]
     Active Substance: MEPOLIZUMAB
     Indication: Asthma
     Route: 065
  5. NUCALA [Suspect]
     Active Substance: MEPOLIZUMAB
     Route: 065
  6. OMALIZUMAB [Suspect]
     Active Substance: OMALIZUMAB
     Indication: Product used for unknown indication
     Route: 065
  7. OMALIZUMAB [Suspect]
     Active Substance: OMALIZUMAB
     Dosage: NOT SPECIFIED
     Route: 065
  8. PREDNISONE [Suspect]
     Active Substance: PREDNISONE
     Indication: Product used for unknown indication
     Dosage: NOT SPECIFIED
     Route: 065
  9. PREDNISONE [Suspect]
     Active Substance: PREDNISONE
     Route: 065
  10. PULMICORT TURBUHALER [Suspect]
     Active Substance: BUDESONIDE
     Indication: Product used for unknown indication
     Dosage: NOT SPECIFIED
     Route: 065
  11. PULMICORT TURBUHALER [Suspect]
     Active Substance: BUDESONIDE
     Route: 055
  12. PULMICORT TURBUHALER [Suspect]
     Active Substance: BUDESONIDE
     Route: 065
  13. RUPATADINE [Suspect]
     Active Substance: RUPATADINE
     Indication: Product used for unknown indication
     Route: 065
  14. RUPATADINE [Suspect]
     Active Substance: RUPATADINE
     Dosage: RUPATADINE FUMARATE
     Route: 065
  15. SINGULAIR [Suspect]
     Active Substance: MONTELUKAST SODIUM
     Indication: Product used for unknown indication
     Route: 065
  16. SINGULAIR [Suspect]
     Active Substance: MONTELUKAST SODIUM
     Dosage: NOT SPECIFIED
     Route: 065
  17. SYMBICORT [Suspect]
     Active Substance: BUDESONIDE\FORMOTEROL FUMARATE DIHYDRATE
     Indication: Product used for unknown indication
     Route: 065
  18. SYMBICORT [Suspect]
     Active Substance: BUDESONIDE\FORMOTEROL FUMARATE DIHYDRATE
     Route: 065
  19. SYMBICORT [Suspect]
     Active Substance: BUDESONIDE\FORMOTEROL FUMARATE DIHYDRATE
     Dosage: NOT SPECIFIED
     Route: 065
  20. TAMIFLU [Suspect]
     Active Substance: OSELTAMIVIR PHOSPHATE
     Indication: Product used for unknown indication
     Dosage: NOT SPECIFIED
     Route: 065
  21. TAMIFLU [Suspect]
     Active Substance: OSELTAMIVIR PHOSPHATE
     Route: 065
  22. AZITHROMYCIN [Suspect]
     Active Substance: AZITHROMYCIN
     Indication: Product used for unknown indication
     Dosage: NOT SPECIFIED
     Route: 065
  23. AZITHROMYCIN [Suspect]
     Active Substance: AZITHROMYCIN
     Dosage: AZITHROMYCIN MONOHYDRATE
     Route: 065
  24. AZITHROMYCIN [Suspect]
     Active Substance: AZITHROMYCIN
     Dosage: PMS-AZITHROMYCIN
     Route: 065
  25. AZITHROMYCIN [Suspect]
     Active Substance: AZITHROMYCIN
     Route: 065
  26. BUDESONIDE\FORMOTEROL FUMARATE [Suspect]
     Active Substance: BUDESONIDE\FORMOTEROL FUMARATE
     Indication: Product used for unknown indication
     Dosage: NOT SPECIFIED
     Route: 065
  27. BUDESONIDE\FORMOTEROL FUMARATE [Suspect]
     Active Substance: BUDESONIDE\FORMOTEROL FUMARATE
     Dosage: NOT SPECIFIED
     Route: 055
  28. BUDESONIDE\FORMOTEROL FUMARATE [Suspect]
     Active Substance: BUDESONIDE\FORMOTEROL FUMARATE
     Dosage: NOT SPECIFIED
     Route: 055
  29. BUDESONIDE\FORMOTEROL FUMARATE [Suspect]
     Active Substance: BUDESONIDE\FORMOTEROL FUMARATE
     Dosage: NOT SPECIFIED
     Route: 065
  30. BUDESONIDE\FORMOTEROL FUMARATE [Suspect]
     Active Substance: BUDESONIDE\FORMOTEROL FUMARATE
     Dosage: BUDESONIDE;FORMOTEROL
     Route: 065
  31. CEFTRIAXONE [Suspect]
     Active Substance: CEFTRIAXONE\CEFTRIAXONE SODIUM
     Indication: Product used for unknown indication
     Route: 065
  32. CEFTRIAXONE [Suspect]
     Active Substance: CEFTRIAXONE\CEFTRIAXONE SODIUM
     Dosage: CEFTRIAXONE SODIUM FOR INJECTION BP
     Route: 065
  33. XOLAIR [Suspect]
     Active Substance: OMALIZUMAB
     Indication: Product used for unknown indication
     Route: 065

REACTIONS (27)
  - Asthma [Unknown]
  - Full blood count abnormal [Unknown]
  - Breath sounds abnormal [Unknown]
  - Chest X-ray abnormal [Unknown]
  - Dyspnoea [Unknown]
  - Lacrimation increased [Unknown]
  - Loss of personal independence in daily activities [Unknown]
  - Nasal polyps [Unknown]
  - Platelet count increased [Unknown]
  - Pulmonary function test abnormal [Unknown]
  - Rhinorrhoea [Unknown]
  - Sneezing [Unknown]
  - Rhinitis allergic [Unknown]
  - Upper-airway cough syndrome [Unknown]
  - Vasculitis [Unknown]
  - Lung disorder [Unknown]
  - Blood lactic acid increased [Unknown]
  - Nasal congestion [Unknown]
  - Chest discomfort [Unknown]
  - Wheezing [Unknown]
  - Cough [Unknown]
  - Blood potassium decreased [Unknown]
  - Eosinophilia [Unknown]
  - Ear pruritus [Unknown]
  - Eye pruritus [Unknown]
  - Urticaria [Unknown]
  - Drug ineffective [Unknown]
